FAERS Safety Report 5366829-0 (Version None)
Quarter: 2007Q2

REPORT INFORMATION
  Report Type: 
  Country: None (occurrence: None)
  Receive Date: 20070622
  Receipt Date: 20070410
  Transmission Date: 20071010
  Serious: No
  Sender: FDA-Public Use
  Company Number: A0646623A

PATIENT
  Age: 57 Year
  Sex: Male

DRUGS (5)
  1. ZYBAN [Suspect]
     Dosage: 150MG TWICE PER DAY
     Route: 048
     Dates: start: 20070327
  2. LEVOTHYROXINE SODIUM [Concomitant]
  3. VITAMINE B6 [Concomitant]
  4. OMEPRAZOLE [Concomitant]
  5. METHADONE HCL [Concomitant]

REACTIONS (2)
  - FEELING JITTERY [None]
  - HEADACHE [None]
